FAERS Safety Report 5489386-7 (Version None)
Quarter: 2007Q4

REPORT INFORMATION
  Report Type: 
  Country: None (occurrence: None)
  Receive Date: 20071005
  Receipt Date: 20070625
  Transmission Date: 20080405
  Serious: No
  Sender: FDA-Public Use
  Company Number: PHEH2007US07747

PATIENT
  Age: 73 Year
  Sex: Female

DRUGS (3)
  1. TEKTURNA [Suspect]
     Indication: HYPERTENSION
     Dosage: 150 MG, QD, ORAL
     Route: 048
     Dates: start: 20070417
  2. TOPROL XL (METOCLOPROL SUCCINATE) [Concomitant]
  3. TRIAMTERENE AND HYDROCHLOTHIAZIDE (HYDROCHLORIDE, TRIAMTERENE) [Concomitant]

REACTIONS (9)
  - BLOOD PRESSURE INADEQUATELY CONTROLLED [None]
  - BLOOD PRESSURE INCREASED [None]
  - COUGH [None]
  - DRUG INEFFECTIVE [None]
  - DYSURIA [None]
  - NASAL CONGESTION [None]
  - OEDEMA PERIPHERAL [None]
  - POLLAKIURIA [None]
  - PRURITUS [None]
